FAERS Safety Report 24657475 (Version 1)
Quarter: 2024Q4

REPORT INFORMATION
  Report Type: Report from Study
  Country: DE (occurrence: DE)
  Receive Date: 20241125
  Receipt Date: 20241125
  Transmission Date: 20250114
  Serious: Yes (Other)
  Sender: ABBVIE
  Company Number: DE-ABBVIE-6014369

PATIENT
  Age: 69 Year
  Sex: Female

DRUGS (2)
  1. FOSCARBIDOPA\FOSLEVODOPA [Suspect]
     Active Substance: FOSCARBIDOPA\FOSLEVODOPA
     Indication: Parkinson^s disease
     Dosage: CRN: 0.28ML/H; CR: 0.31ML/H; CRH: 0.34ML/H; ED: 0.20ML; LAST ADMIN DATE: 2024
     Route: 058
     Dates: start: 20241022
  2. FOSCARBIDOPA\FOSLEVODOPA [Suspect]
     Active Substance: FOSCARBIDOPA\FOSLEVODOPA
     Dosage: CRN: 0.31 ML/H, CR: 0.34 ML/H, CRH: 0.37 ML/H, ED: 0.20 ML; FIRST ADMIN DATE
     Route: 058

REACTIONS (2)
  - Intentional self-injury [Not Recovered/Not Resolved]
  - Psychomotor hyperactivity [Not Recovered/Not Resolved]

NARRATIVE: CASE EVENT DATE: 20241101
